FAERS Safety Report 13162711 (Version 1)
Quarter: 2017Q1

REPORT INFORMATION
  Report Type: Spontaneous
  Country: US (occurrence: US)
  Receive Date: 20170126
  Receipt Date: 20170126
  Transmission Date: 20170428
  Serious: Yes (Death)
  Sender: FDA-Public Use
  Company Number: None

PATIENT
  Age: 96 Year
  Sex: Female

DRUGS (19)
  1. NUPLAZID [Suspect]
     Active Substance: PIMAVANSERIN TARTRATE
     Indication: PARKINSON^S DISEASE
     Route: 048
     Dates: start: 20160809, end: 201701
  2. CALCIUM VITA [Concomitant]
  3. CLONAZEPAM. [Concomitant]
     Active Substance: CLONAZEPAM
  4. GABAPENTIN. [Concomitant]
     Active Substance: GABAPENTIN
  5. LUBRICANT EYE DROP [Concomitant]
  6. DOXYCYCL HYC [Concomitant]
  7. FLUTICASON [Concomitant]
     Active Substance: FLUTICASONE
  8. SENEXON [Concomitant]
     Active Substance: SENNOSIDES A AND B
  9. CALCIUM CARB SUSP [Concomitant]
  10. SMZ/TMP [Concomitant]
     Active Substance: SULFAMETHOXAZOLE\TRIMETHOPRIM
  11. VOLTAREN [Concomitant]
     Active Substance: DICLOFENAC SODIUM
  12. DONEPEZIL. [Concomitant]
     Active Substance: DONEPEZIL
  13. D-VI-SOL [Concomitant]
  14. QPAP [Concomitant]
  15. STOOL SOFTENER (DOCUSATE SODIUM) [Concomitant]
     Active Substance: DOCUSATE SODIUM
  16. CARB/LEVO [Concomitant]
     Active Substance: CARBIDOPA\LEVODOPA
  17. MAPAP POLYETH GLY [Concomitant]
  18. QUETIAPINE. [Concomitant]
     Active Substance: QUETIAPINE
  19. CIPROFLOX [Concomitant]
     Active Substance: CIPROFLOXACIN HYDROCHLORIDE

REACTIONS (1)
  - Death [None]

NARRATIVE: CASE EVENT DATE: 201701
